FAERS Safety Report 5821724-5 (Version None)
Quarter: 2008Q3

REPORT INFORMATION
  Report Type: 
  Country: None (occurrence: None)
  Receive Date: 20080721
  Receipt Date: 20080704
  Transmission Date: 20090109
  Serious: Yes (Hospitalization)
  Sender: FDA-Public Use
  Company Number: 2008BI016983

PATIENT
  Age: 64 Year
  Sex: Female

DRUGS (3)
  1. TYSABRI [Suspect]
     Indication: MULTIPLE SCLEROSIS
     Dosage: 300 MG; QM; IV
     Route: 042
     Dates: start: 20070101
  2. PERINDOPRIL ERBUMINE [Concomitant]
  3. LEVOCARNIL [Concomitant]

REACTIONS (4)
  - BLOOD IMMUNOGLOBULIN M DECREASED [None]
  - EPSTEIN-BARR VIRUS INFECTION [None]
  - MULTIPLE SCLEROSIS RELAPSE [None]
  - MUSCULAR WEAKNESS [None]
